FAERS Safety Report 9250503 (Version 1)
Quarter: 2013Q1

REPORT INFORMATION
  Report Type: Spontaneous
  Country: US (occurrence: None)
  Receive Date: 20130305
  Receipt Date: 20130305
  Transmission Date: 20140127
  Serious: Yes (Other)
  Sender: FDA-Public Use
  Company Number: 163-21880-12093071

PATIENT
  Age: 71 Year
  Sex: Male
  Weight: 90.72 kg

DRUGS (18)
  1. REVLIMID [Suspect]
     Indication: 5Q MINUS SYNDROME
     Dosage: 5 MG, 1 IN 1 D, PO
     Route: 048
     Dates: start: 20110612
  2. LANSOPRAZOLE (LANSOPRAZOLE) [Concomitant]
  3. ALLOPURINOL [Concomitant]
  4. LISINOPRIL (LISINOPRIL) [Concomitant]
  5. ATORVASTATIN (ATORVASTATIN) [Concomitant]
  6. IBUPROFEN (IBUPROFEN) [Concomitant]
  7. SLEEP MEDICAITON (OTHER THERAPEUTIC PRODUCTS) [Concomitant]
  8. VITAMINS (VITAMINS) [Concomitant]
  9. ASPIRIN [Concomitant]
  10. COQ10 (UBIDECARENONE) [Concomitant]
  11. MAGNESIUM (MAGNESIUM) [Concomitant]
  12. MULTIVITAMIN [Concomitant]
  13. POTASSIUM CHLORIDE (POTASSIUM CHLORIDE) [Concomitant]
  14. PRILOSEC [Concomitant]
  15. VITAMIN B12 (CYANOCOBALAMIN) [Concomitant]
  16. VITAMIN C [Concomitant]
  17. VITAMIN D (ERGOCALCIFEROL) [Concomitant]
  18. VITAMIN E (TOCOPHEROL) [Concomitant]

REACTIONS (3)
  - Haemoglobin decreased [None]
  - Initial insomnia [None]
  - Drug ineffective [None]
